FAERS Safety Report 10398139 (Version 1)
Quarter: 2014Q3

REPORT INFORMATION
  Report Type: Spontaneous
  Country: CN (occurrence: None)
  Receive Date: 20140818
  Receipt Date: 20140818
  Transmission Date: 20150326
  Serious: Yes (Death, Hospitalization, Other)
  Sender: FDA-Public Use
  Company Number: 2014JUB00083

PATIENT
  Age: 82 Year
  Sex: Male

DRUGS (3)
  1. METHYLPREDNISOLONE ( METHYLPREDNISOLONE) UNKNOWN [Suspect]
     Active Substance: METHYLPREDNISOLONE
     Dosage: 1X/DAY
  2. IMIPENEM AND CILASTATIN [Concomitant]
     Active Substance: CILASTATIN SODIUM\IMIPENEM
  3. LEVOFLOXACIN [Concomitant]
     Active Substance: LEVOFLOXACIN

REACTIONS (3)
  - Bronchopulmonary aspergillosis [None]
  - Multi-organ failure [None]
  - Loss of consciousness [None]

NARRATIVE: CASE EVENT DATE: 2007
